FAERS Safety Report 6858370-0 (Version None)
Quarter: 2010Q3

REPORT INFORMATION
  Report Type: 
  Country: None (occurrence: None)
  Receive Date: 20100719
  Receipt Date: 20080207
  Transmission Date: 20110219
  Serious: No
  Sender: FDA-Public Use
  Company Number: US-PFIZER INC-2008012593

PATIENT
  Sex: Male
  Weight: 87.727 kg

DRUGS (2)
  1. CHANTIX [Suspect]
     Indication: SMOKING CESSATION THERAPY
     Dates: start: 20080101
  2. LIPITOR [Concomitant]
     Dates: start: 20070101

REACTIONS (1)
  - DRUG INEFFECTIVE [None]
